FAERS Safety Report 14238497 (Version 4)
Quarter: 2018Q1

REPORT INFORMATION
  Report Type: Spontaneous
  Country: CA (occurrence: CA)
  Receive Date: 20171130
  Receipt Date: 20180329
  Transmission Date: 20180508
  Serious: Yes (Other)
  Sender: FDA-Public Use
  Company Number: CA-CELLTRION INC.-2017CA016468

PATIENT

DRUGS (12)
  1. TELMISARTAN. [Concomitant]
     Active Substance: TELMISARTAN
  2. AZATHIOPRINE. [Concomitant]
     Active Substance: AZATHIOPRINE
  3. ASA [Concomitant]
     Active Substance: ASPIRIN
  4. HUMIRA [Concomitant]
     Active Substance: ADALIMUMAB
  5. INFLECTRA [Suspect]
     Active Substance: INFLIXIMAB-DYYB
     Indication: COLITIS ULCERATIVE
     Dosage: 5 MG/KG, CYCLIC(EVERY 2, 6 WEEKS, THEN EVERY 8 WEEKS)
     Route: 042
     Dates: start: 20170816
  6. INFLECTRA [Suspect]
     Active Substance: INFLIXIMAB-DYYB
     Dosage: 357.5 MG, UNK
     Route: 042
     Dates: start: 20171121
  7. SIMPONI [Concomitant]
     Active Substance: GOLIMUMAB
  8. ALFUZOSIN [Concomitant]
     Active Substance: ALFUZOSIN
  9. PENTASA [Concomitant]
     Active Substance: MESALAMINE
  10. PREDNISONE. [Concomitant]
     Active Substance: PREDNISONE
  11. ASACOL [Concomitant]
     Active Substance: MESALAMINE
  12. ALOPURINOL [Concomitant]
     Active Substance: ALLOPURINOL

REACTIONS (3)
  - Colitis ulcerative [Recovering/Resolving]
  - Condition aggravated [Recovering/Resolving]
  - Incorrect dose administered [Unknown]

NARRATIVE: CASE EVENT DATE: 201711
